FAERS Safety Report 17747373 (Version 4)
Quarter: 2020Q3

REPORT INFORMATION
  Report Type: Spontaneous
  Country: US (occurrence: US)
  Receive Date: 20200505
  Receipt Date: 20200929
  Transmission Date: 20201102
  Serious: Yes (Death, Other)
  Sender: FDA-Public Use
  Company Number: US-BRISTOL-MYERS SQUIBB COMPANY-BMS-2020-035889

PATIENT
  Age: 62 Year
  Sex: Female

DRUGS (2)
  1. OPDIVO [Suspect]
     Active Substance: NIVOLUMAB
     Indication: SARCOMA
     Dosage: 180 MILLIGRAM, Q3WK
     Route: 042
     Dates: start: 20200409, end: 20200409
  2. YERVOY [Suspect]
     Active Substance: IPILIMUMAB
     Indication: SARCOMA
     Dosage: 61.1 MILLIGRAM, Q3WK
     Route: 042
     Dates: start: 20200409, end: 20200409

REACTIONS (5)
  - Hypotension [Unknown]
  - Intentional product use issue [Unknown]
  - Cardiogenic shock [Fatal]
  - Fall [Unknown]
  - Back pain [Unknown]

NARRATIVE: CASE EVENT DATE: 20200412
